FAERS Safety Report 19942721 (Version 1)
Quarter: 2021Q4

REPORT INFORMATION
  Report Type: Report from Study
  Country: CA (occurrence: CA)
  Receive Date: 20211011
  Receipt Date: 20211011
  Transmission Date: 20220303
  Serious: Yes (Hospitalization, Other)
  Sender: FDA-Public Use
  Company Number: CA-JNJFOC-20210726091

PATIENT
  Age: 73 Year
  Sex: Female
  Weight: 78 kg

DRUGS (1)
  1. REMICADE [Suspect]
     Active Substance: INFLIXIMAB
     Indication: Crohn^s disease
     Route: 042
     Dates: start: 20071212

REACTIONS (3)
  - Colon operation [Unknown]
  - Proctectomy [Unknown]
  - Leukaemia [Unknown]

NARRATIVE: CASE EVENT DATE: 20210705
